FAERS Safety Report 12565293 (Version 1)
Quarter: 2016Q3

REPORT INFORMATION
  Report Type: Spontaneous
  Country: US (occurrence: US)
  Receive Date: 20160718
  Receipt Date: 20160718
  Transmission Date: 20161109
  Serious: No
  Sender: FDA-Public Use
  Company Number: US-GLENMARK PHARMACEUTICALS INC, USA.-2015GMK020173

PATIENT
  Age: 13 Year
  Sex: Male

DRUGS (10)
  1. GUANFACINE. [Concomitant]
     Active Substance: GUANFACINE
     Indication: PSYCHOMOTOR HYPERACTIVITY
     Dosage: 0.5 MG, TWICE A DAY
     Route: 065
  2. ARIPIPRAZOLE. [Suspect]
     Active Substance: ARIPIPRAZOLE
     Dosage: 2 MG, DAILY
     Route: 065
  3. METFORMIN [Suspect]
     Active Substance: METFORMIN HYDROCHLORIDE
     Indication: METABOLIC SYNDROME
     Dosage: 250 MG, DAILY
     Route: 065
  4. METFORMIN [Suspect]
     Active Substance: METFORMIN HYDROCHLORIDE
     Indication: WEIGHT CONTROL
  5. SERTRALINE [Concomitant]
     Active Substance: SERTRALINE HYDROCHLORIDE
     Indication: ANXIETY
     Dosage: 12.5 MG, DAILY
     Route: 065
  6. ARIPIPRAZOLE. [Suspect]
     Active Substance: ARIPIPRAZOLE
     Dosage: 5 MG, DAILY
     Route: 065
  7. MELATONIN [Concomitant]
     Active Substance: MELATONIN
     Indication: SLEEP DISORDER
     Dosage: 3 MG, UNK
     Route: 065
  8. SERTRALINE [Concomitant]
     Active Substance: SERTRALINE HYDROCHLORIDE
     Dosage: 100 MG, DAILY
     Route: 065
  9. ARIPIPRAZOLE. [Suspect]
     Active Substance: ARIPIPRAZOLE
     Indication: AUTISM
     Dosage: 2.5 MG, DAILY
     Route: 065
  10. GUANFACINE. [Concomitant]
     Active Substance: GUANFACINE
     Indication: DISTRACTIBILITY

REACTIONS (6)
  - Weight increased [Recovered/Resolved]
  - Metabolic syndrome [Unknown]
  - Off label use [Unknown]
  - Trismus [Recovered/Resolved]
  - Therapeutic response unexpected [Unknown]
  - Drooling [Recovered/Resolved]
